FAERS Safety Report 7349188-3 (Version None)
Quarter: 2011Q1

REPORT INFORMATION
  Report Type: 
  Country: None (occurrence: None)
  Receive Date: 20110314
  Receipt Date: 20110308
  Transmission Date: 20110831
  Serious: Yes (Hospitalization)
  Sender: FDA-Public Use
  Company Number: DE-AMGEN-DEUSP2011008449

PATIENT
  Age: 88 Year
  Sex: Female
  Weight: 57 kg

DRUGS (10)
  1. PROLIA [Suspect]
     Indication: PRODUCT USED FOR UNKNOWN INDICATION
     Dosage: 60 MG, Q6MO
     Dates: start: 20101129, end: 20101129
  2. CARVEDILOL [Concomitant]
     Dosage: 25 MG, BID
  3. MELOXICAM [Concomitant]
     Dosage: 15 MG, BID
  4. ASPIRIN [Concomitant]
     Dosage: 100 MG, UNK
  5. LUMIGAN [Concomitant]
     Dosage: UNK UNK, BID
  6. DEKRISTOL [Concomitant]
     Dosage: 20000 IU, QWK
  7. PANTOZOL                           /01263202/ [Concomitant]
     Dosage: 20 MG, QD
  8. BUDENOFALK [Concomitant]
     Dosage: 30 MG, QD
  9. RAMIPRIL [Concomitant]
     Dosage: UNK UNK, QD
  10. KATADOLON                          /00890102/ [Concomitant]
     Dosage: UNK UNK, BID

REACTIONS (5)
  - NAUSEA [None]
  - ADVERSE REACTION [None]
  - DIZZINESS [None]
  - PAIN [None]
  - VOMITING [None]
